FAERS Safety Report 9230168 (Version 1)
Quarter: 2013Q2

REPORT INFORMATION
  Report Type: Spontaneous
  Country: US (occurrence: None)
  Receive Date: 20130412
  Receipt Date: 20130412
  Transmission Date: 20140414
  Serious: Yes (Other)
  Sender: FDA-Public Use
  Company Number: None

PATIENT
  Age: 59 Year
  Sex: Female
  Weight: 61.24 kg

DRUGS (1)
  1. FEMARA [Suspect]
     Indication: BREAST CANCER
     Route: 048
     Dates: start: 200810

REACTIONS (8)
  - Lumbar spinal stenosis [None]
  - Night sweats [None]
  - Hot flush [None]
  - Arthralgia [None]
  - Arthritis [None]
  - Osteopenia [None]
  - Back pain [None]
  - Constipation [None]
